FAERS Safety Report 8001844-X (Version None)
Quarter: 2011Q4

REPORT INFORMATION
  Report Type: 
  Country: None (occurrence: None)
  Receive Date: 20111220
  Receipt Date: 20111207
  Transmission Date: 20120403
  Serious: Yes (Hospitalization)
  Sender: FDA-Public Use
  Company Number: NSR_00326_2011

PATIENT
  Sex: Female
  Weight: 68.0396 kg

DRUGS (2)
  1. LAMOTRIGINE [Suspect]
     Indication: AUTISM
     Dosage: 50 MG, QD, ORAL (25 MG, QD, ORAL
     Route: 048
     Dates: start: 20110901, end: 20110101
  2. LAMOTRIGINE [Suspect]
     Indication: AUTISM
     Dosage: 50 MG, QD, ORAL (25 MG, QD, ORAL
     Route: 048
     Dates: start: 20110101, end: 20110101

REACTIONS (6)
  - RASH [None]
  - SCREAMING [None]
  - DYSKINESIA [None]
  - AGGRESSION [None]
  - BLEPHAROSPASM [None]
  - PROTRUSION TONGUE [None]
